FAERS Safety Report 25873964 (Version 1)
Quarter: 2025Q4

REPORT INFORMATION
  Report Type: Spontaneous
  Country: EU (occurrence: EU)
  Receive Date: 20251002
  Receipt Date: 20251002
  Transmission Date: 20260117
  Serious: Yes (Other)
  Sender: RANBAXY
  Company Number: EU-MINISAL02-1043788

PATIENT
  Age: 41 Year
  Sex: Male
  Weight: 64 kg

DRUGS (4)
  1. OXALIPLATIN [Suspect]
     Active Substance: OXALIPLATIN
     Indication: Oesophageal adenocarcinoma
     Dosage: 150 MILLIGRAM
     Route: 042
     Dates: start: 20250226, end: 20250226
  2. TRASTUZUMAB [Suspect]
     Active Substance: TRASTUZUMAB
     Indication: Oesophageal adenocarcinoma
     Dosage: 260 MILLIGRAM
     Route: 042
     Dates: start: 20250226, end: 20250226
  3. FLUOROURACIL [Suspect]
     Active Substance: FLUOROURACIL
     Indication: Oesophageal adenocarcinoma
     Dosage: 566 MILLIGRAM, INTRAVENOUS BOLUS
     Route: 042
     Dates: start: 20250226, end: 20250226
  4. FLUOROURACIL [Suspect]
     Active Substance: FLUOROURACIL
     Dosage: 3398 MILLIGRAM
     Route: 042
     Dates: start: 20250226, end: 20250226

REACTIONS (2)
  - Hyperkalaemia [Recovering/Resolving]
  - Off label use [Recovering/Resolving]

NARRATIVE: CASE EVENT DATE: 20250226
